FAERS Safety Report 7578929-5 (Version None)
Quarter: 2011Q2

REPORT INFORMATION
  Report Type: 
  Country: None (occurrence: None)
  Receive Date: 20110628
  Receipt Date: 20101110
  Transmission Date: 20111010
  Serious: Yes (Death, Other)
  Sender: FDA-Public Use
  Company Number: PHEH2009US05550

PATIENT
  Sex: Female

DRUGS (9)
  1. ZANTAC [Concomitant]
  2. EXJADE [Suspect]
     Dosage: UNK
     Route: 048
     Dates: start: 20060601, end: 20060701
  3. EXJADE [Suspect]
     Indication: SICKLE CELL ANAEMIA
     Dosage: 1000 MG, QD
     Dates: start: 20060424
  4. TOPROL-XL [Concomitant]
  5. WARFARIN SODIUM [Concomitant]
  6. NSAID'S [Concomitant]
  7. ASACOL [Concomitant]
     Indication: INFLAMMATORY BOWEL DISEASE
     Dosage: 400 MG, BID
     Route: 048
  8. LISINOPRIL [Concomitant]
  9. OXYCONTIN [Concomitant]

REACTIONS (9)
  - CARDIAC FAILURE CONGESTIVE [None]
  - RECTAL HAEMORRHAGE [None]
  - CROHN'S DISEASE [None]
  - RENAL FAILURE CHRONIC [None]
  - PNEUMONIA [None]
  - HAEMATOCHEZIA [None]
  - MULTI-ORGAN FAILURE [None]
  - DIARRHOEA [None]
  - GASTROINTESTINAL DISORDER [None]
